FAERS Safety Report 24411976 (Version 1)
Quarter: 2024Q4

REPORT INFORMATION
  Report Type: Spontaneous
  Country: US (occurrence: US)
  Receive Date: 20241008
  Receipt Date: 20241008
  Transmission Date: 20250115
  Serious: Yes (Hospitalization)
  Sender: BAUSCH AND LOMB
  Company Number: US-BAUSCHBL-2024BNL034127

PATIENT
  Age: 43 Year
  Sex: Female

DRUGS (8)
  1. MAGNESIUM GLUCONATE [Suspect]
     Active Substance: MAGNESIUM GLUCONATE
     Indication: Product used for unknown indication
     Route: 065
  2. CALTRATE [Suspect]
     Active Substance: CALCIUM CARBONATE
     Indication: Product used for unknown indication
     Route: 065
  3. CALTRATE [Suspect]
     Active Substance: CALCIUM CARBONATE
     Indication: Product used for unknown indication
     Route: 065
  4. VITAMIN B12 [Suspect]
     Active Substance: CYANOCOBALAMIN
     Indication: Product used for unknown indication
     Route: 065
  5. BIOTIN [Concomitant]
     Active Substance: BIOTIN
     Indication: Product used for unknown indication
     Route: 065
  6. VITAMIN B6 [Concomitant]
     Active Substance: PYRIDOXINE HYDROCHLORIDE
     Indication: Product used for unknown indication
     Route: 065
  7. VITAMIN D2 [Concomitant]
     Active Substance: ERGOCALCIFEROL
     Indication: Product used for unknown indication
     Route: 065
  8. WHEY [Concomitant]
     Active Substance: WHEY
     Indication: Product used for unknown indication
     Route: 065

REACTIONS (9)
  - Gastrointestinal disorder [Unknown]
  - Abdominal discomfort [Unknown]
  - Dehydration [Unknown]
  - Heart rate decreased [Unknown]
  - Hypotension [Unknown]
  - Hypovitaminosis [Unknown]
  - Laboratory test abnormal [Unknown]
  - Malnutrition [Unknown]
  - Palpitations [Unknown]

NARRATIVE: CASE EVENT DATE: 20131018
